FAERS Safety Report 17584070 (Version 1)
Quarter: 2020Q1

REPORT INFORMATION
  Report Type: Spontaneous
  Country: TN (occurrence: TN)
  Receive Date: 20200326
  Receipt Date: 20200326
  Transmission Date: 20200409
  Serious: Yes (Hospitalization, Other)
  Sender: FDA-Public Use
  Company Number: TN-ALKEM LABORATORIES LIMITED-TN-ALKEM-2020-00802

PATIENT
  Age: 41 Year
  Sex: Male

DRUGS (3)
  1. TACROLIMUS. [Concomitant]
     Active Substance: TACROLIMUS
     Indication: IMMUNOSUPPRESSANT DRUG THERAPY
     Dosage: 12 MILLIGRAM, QD
     Route: 065
     Dates: start: 201807
  2. MYCOPHENOLATE MOFETIL. [Suspect]
     Active Substance: MYCOPHENOLATE MOFETIL
     Indication: IMMUNOSUPPRESSANT DRUG THERAPY
     Dosage: 2 GRAM, QD
     Route: 065
     Dates: start: 201807, end: 201812
  3. PREDNISONE. [Concomitant]
     Active Substance: PREDNISONE
     Indication: IMMUNOSUPPRESSANT DRUG THERAPY
     Dosage: 10 MILLIGRAM, QD
     Route: 065
     Dates: start: 201807

REACTIONS (3)
  - Leukopenia [Recovered/Resolved]
  - Aphthous ulcer [Recovered/Resolved]
  - Mucosal toxicity [Recovered/Resolved]

NARRATIVE: CASE EVENT DATE: 201812
